FAERS Safety Report 17090746 (Version 2)
Quarter: 2020Q2

REPORT INFORMATION
  Report Type: Spontaneous
  Country: GB (occurrence: GB)
  Receive Date: 20191129
  Receipt Date: 20200626
  Transmission Date: 20200713
  Serious: Yes (Hospitalization)
  Sender: FDA-Public Use
  Company Number: GB-009507513-1911GBR010834

PATIENT
  Age: 53 Year
  Sex: Male

DRUGS (6)
  1. ASPIRIN. [Concomitant]
     Active Substance: ASPIRIN
     Dosage: 75 MILLIGRAM, QD
  2. VALPROIC ACID. [Suspect]
     Active Substance: VALPROIC ACID
     Indication: MOOD ALTERED
     Dosage: 500 MILLIGRAM
     Route: 048
  3. VITAMIN B (UNSPECIFIED) [Concomitant]
     Active Substance: VITAMIN B
  4. OLANZAPINE. [Concomitant]
     Active Substance: OLANZAPINE
     Dosage: 15 MILLIGRAM, 1 DAY(QD), AT NIGHT
  5. LOSARTAN POTASSIUM. [Suspect]
     Active Substance: LOSARTAN POTASSIUM
     Indication: HYPERTENSION
     Dosage: 100 MILLIGRAM
     Route: 048
     Dates: end: 20191111
  6. ESOMEPRAZOLE. [Suspect]
     Active Substance: ESOMEPRAZOLE MAGNESIUM
     Indication: PROPHYLAXIS
     Dosage: 20 MILLIGRAM
     Route: 048
     Dates: end: 20191111

REACTIONS (2)
  - Seizure [Unknown]
  - Hyponatraemia [Not Recovered/Not Resolved]

NARRATIVE: CASE EVENT DATE: 20191110
